FAERS Safety Report 17062388 (Version 1)
Quarter: 2020Q3

REPORT INFORMATION
  Report Type: Report from Study
  Country: US (occurrence: US)
  Receive Date: 20191122
  Receipt Date: 20191122
  Transmission Date: 20201104
  Serious: Yes (Hospitalization)
  Sender: FDA-Public Use
  Company Number: US-ROCHE-2471518

PATIENT
  Age: 55 Year
  Sex: Female
  Weight: 55.8 kg

DRUGS (6)
  1. ANETUMAB RAVTANSINE. [Suspect]
     Active Substance: ANETUMAB RAVTANSINE
     Indication: OVARIAN CANCER
     Dosage: LAST DOSE(500 MG) OF ANETUMAB RAVTANSINE ON PRIOR TO AE ONSET DATE: 28/OCT/2019
     Route: 042
     Dates: start: 20190909
  2. BEVACIZUMAB. [Suspect]
     Active Substance: BEVACIZUMAB
     Indication: OVARIAN CANCER
     Dosage: LAST DOSE(1100 MG) OF BEVACIZUMAB ON PRIOR TO AE ONSET DATE: 21/OCT/2019
     Route: 042
     Dates: start: 20190909
  3. GABAPENTIN. [Concomitant]
     Active Substance: GABAPENTIN
     Route: 065
     Dates: start: 20191031
  4. GABAPENTIN. [Concomitant]
     Active Substance: GABAPENTIN
     Route: 065
  5. IBUPROFEN. [Concomitant]
     Active Substance: IBUPROFEN
     Route: 065
  6. MORPHINE [Concomitant]
     Active Substance: MORPHINE
     Indication: PAIN IN EXTREMITY
     Route: 065
     Dates: start: 20191105

REACTIONS (1)
  - Paraesthesia [Not Recovered/Not Resolved]

NARRATIVE: CASE EVENT DATE: 20191105
